FAERS Safety Report 10178888 (Version 1)
Quarter: 2014Q2

REPORT INFORMATION
  Report Type: Spontaneous
  Country: US (occurrence: US)
  Receive Date: 20140519
  Receipt Date: 20140519
  Transmission Date: 20141212
  Serious: No
  Sender: FDA-Public Use
  Company Number: US-BIOGENIDEC-2014BI040330

PATIENT
  Sex: Male

DRUGS (2)
  1. TECFIDERA [Suspect]
     Indication: MULTIPLE SCLEROSIS
  2. AVONEX [Concomitant]
     Indication: MULTIPLE SCLEROSIS
     Route: 030
     Dates: start: 20081005, end: 20130625

REACTIONS (10)
  - Headache [Unknown]
  - Migraine [Unknown]
  - Macular degeneration [Unknown]
  - Apathy [Unknown]
  - Asthenia [Unknown]
  - Mobility decreased [Unknown]
  - Memory impairment [Unknown]
  - Multiple sclerosis relapse [Unknown]
  - Nausea [Unknown]
  - Vomiting [Unknown]
